FAERS Safety Report 4552797-8 (Version None)
Quarter: 2005Q1

REPORT INFORMATION
  Report Type: 
  Country: None (occurrence: None)
  Receive Date: 20050114
  Receipt Date: 20050104
  Transmission Date: 20050727
  Serious: Yes (Hospitalization)
  Sender: FDA-Public Use
  Company Number: FR-ROCHE-391349

PATIENT
  Age: 23 Year
  Sex: Male

DRUGS (7)
  1. MYCOPHENOLATE MOFETIL [Suspect]
     Route: 065
     Dates: start: 20040721, end: 20040802
  2. MYCOPHENOLATE MOFETIL [Suspect]
     Dosage: TO ACHIEVE TARGET AUC.
     Route: 065
     Dates: start: 20040803
  3. BACTRIM [Suspect]
     Indication: ANTIBACTERIAL PROPHYLAXIS
     Route: 065
     Dates: start: 20040725, end: 20041005
  4. VALGANCICLOVIR [Suspect]
     Indication: ANTIVIRAL PROPHYLAXIS
     Route: 065
     Dates: start: 20040727, end: 20041005
  5. CYCLOSPORINE [Suspect]
     Route: 065
     Dates: start: 20040723, end: 20040728
  6. SOLU-MEDROL [Suspect]
     Route: 065
     Dates: start: 20040721, end: 20040721
  7. SOLU-MEDROL [Suspect]
     Dosage: TAPER ACCORDING TO LOCAL PROTOCOL.
     Route: 065
     Dates: start: 20040722

REACTIONS (1)
  - AGRANULOCYTOSIS [None]
